FAERS Safety Report 8216068-0 (Version None)
Quarter: 2012Q1

REPORT INFORMATION
  Report Type: 
  Country: None (occurrence: None)
  Receive Date: 20120313
  Receipt Date: 20120229
  Transmission Date: 20120608
  Serious: Yes (Other)
  Sender: FDA-Public Use
  Company Number: 2012AP000563

PATIENT
  Age: 47 Year
  Sex: Male

DRUGS (2)
  1. FLUCONAZOLE [Suspect]
     Indication: CRYPTOCOCCOSIS
  2. AMPHOTERICIN B [Suspect]
     Indication: CRYPTOCOCCOSIS

REACTIONS (3)
  - RESTRICTIVE PULMONARY DISEASE [None]
  - SEPSIS [None]
  - IMMUNE RECONSTITUTION SYNDROME [None]
